FAERS Safety Report 4960876-6 (Version None)
Quarter: 2006Q1

REPORT INFORMATION
  Report Type: 
  Country: None (occurrence: None)
  Receive Date: 20060331
  Receipt Date: 20060331
  Transmission Date: 20060701
  Serious: Yes (Other)
  Sender: FDA-Public Use
  Company Number: None

PATIENT
  Sex: Female
  Weight: 81.6475 kg

DRUGS (3)
  1. BACTRIM [Suspect]
     Indication: OTITIS MEDIA
     Dosage: 500 MG BID ORAL
     Route: 048
     Dates: start: 20060210, end: 20060213
  2. BACTRIM [Suspect]
     Indication: OTITIS MEDIA
     Dosage: 500 MG BID ORAL
     Route: 048
     Dates: start: 20060208
  3. BACTRIM [Suspect]
     Indication: OTITIS MEDIA
     Dosage: 500 MG BID ORAL
     Route: 048
     Dates: start: 20060209

REACTIONS (9)
  - ALOPECIA [None]
  - ANOREXIA [None]
  - DRY EYE [None]
  - INFLUENZA LIKE ILLNESS [None]
  - MYALGIA [None]
  - OCULAR HYPERAEMIA [None]
  - PYREXIA [None]
  - RASH ERYTHEMATOUS [None]
  - STEVENS-JOHNSON SYNDROME [None]
